FAERS Safety Report 4850673-4 (Version None)
Quarter: 2005Q4

REPORT INFORMATION
  Report Type: 
  Country: None (occurrence: None)
  Receive Date: 20051208
  Receipt Date: 20051208
  Transmission Date: 20060501
  Serious: Yes (Hospitalization)
  Sender: FDA-Public Use
  Company Number: None

PATIENT
  Age: 68 Year
  Sex: Male
  Weight: 110.6777 kg

DRUGS (1)
  1. TERAZOSIN 2 MG [Suspect]
     Indication: BENIGN PROSTATIC HYPERPLASIA
     Dosage: 4 MG QHS PO
     Route: 048
     Dates: start: 20050823, end: 20051206

REACTIONS (6)
  - DIZZINESS [None]
  - FALL [None]
  - RENAL FAILURE ACUTE [None]
  - SYNCOPE [None]
  - TREATMENT NONCOMPLIANCE [None]
  - VISION BLURRED [None]
